FAERS Safety Report 9780624 (Version 1)
Quarter: 2013Q4

REPORT INFORMATION
  Report Type: Report from Study
  Country: KR (occurrence: KR)
  Receive Date: 20131224
  Receipt Date: 20131224
  Transmission Date: 20140711
  Serious: Yes (Other)
  Sender: FDA-Public Use
  Company Number: KR-ROCHE-1322307

PATIENT
  Sex: 0

DRUGS (5)
  1. PEG-INTERFERON ALFA 2A [Suspect]
     Indication: CHRONIC HEPATITIS C
     Route: 058
  2. RIBAVIRIN [Suspect]
     Indication: CHRONIC HEPATITIS C
     Dosage: FOR PATIENTS WEIGHING LESS THAN OR EQUAL TO 75 KG FOR 48 WEKS.
     Route: 048
  3. RIBAVIRIN [Suspect]
     Dosage: FOR THOSE WEIGHING MORE THAN 75 KG FOR 48 WEEKS
     Route: 048
  4. RIBAVIRIN [Suspect]
     Dosage: FOR 24 QWEEKS
     Route: 048
  5. PEGINTERFERON ALFA-2B [Suspect]
     Indication: CHRONIC HEPATITIS C
     Dosage: FOR 48 WEEKS
     Route: 058

REACTIONS (19)
  - Pruritus [Unknown]
  - Rash [Unknown]
  - Asthenia [Unknown]
  - Depression [Unknown]
  - Chest discomfort [Unknown]
  - Influenza like illness [Unknown]
  - Thyroid disorder [Unknown]
  - Anxiety [Unknown]
  - Tinnitus [Unknown]
  - Anaemia [Unknown]
  - Leukopenia [Unknown]
  - Alanine aminotransferase increased [Unknown]
  - Nausea [Unknown]
  - Alopecia [Unknown]
  - Weight decreased [Unknown]
  - Decreased appetite [Unknown]
  - Thrombocytopenia [Unknown]
  - Dry mouth [Unknown]
  - Insomnia [Unknown]
